FAERS Safety Report 25741513 (Version 2)
Quarter: 2025Q3

REPORT INFORMATION
  Report Type: Spontaneous
  Country: EU (occurrence: EU)
  Receive Date: 20250829
  Receipt Date: 20250903
  Transmission Date: 20251021
  Serious: Yes (Life-Threatening, Hospitalization)
  Sender: BAYER HEALTHCARE PHARMACEUTICALS INC.
  Company Number: None

PATIENT
  Age: 30 Year
  Sex: Male
  Weight: 93 kg

DRUGS (1)
  1. CIPROFLOXACIN [Suspect]
     Active Substance: CIPROFLOXACIN
     Dosage: 1 DF, BID
     Route: 048
     Dates: start: 20250802, end: 20250804

REACTIONS (1)
  - Myalgia [Recovering/Resolving]

NARRATIVE: CASE EVENT DATE: 20250801
